FAERS Safety Report 17104774 (Version 1)
Quarter: 2019Q4

REPORT INFORMATION
  Report Type: Spontaneous
  Country: US (occurrence: US)
  Receive Date: 20191203
  Receipt Date: 20191203
  Transmission Date: 20200122
  Serious: No
  Sender: FDA-Public Use
  Company Number: US-BRISTOL-MYERS SQUIBB COMPANY-BMS-2019-115897

PATIENT
  Sex: Female

DRUGS (1)
  1. ELIQUIS [Suspect]
     Active Substance: APIXABAN
     Indication: PRODUCT USED FOR UNKNOWN INDICATION
     Dosage: 5 MILLIGRAM, BID, PATIENT WAS TAKING THERAPY FOR LAST 45 DAYS
     Route: 065
     Dates: start: 2019

REACTIONS (3)
  - Emotional disorder [Unknown]
  - Hypertension [Unknown]
  - Tremor [Unknown]
